FAERS Safety Report 25821163 (Version 1)
Quarter: 2025Q3

REPORT INFORMATION
  Report Type: Spontaneous
  Country: IQ (occurrence: IQ)
  Receive Date: 20250919
  Receipt Date: 20250919
  Transmission Date: 20251021
  Serious: Yes (Life-Threatening, Hospitalization, Other)
  Sender: Onesource Specialty Pharma
  Company Number: IQ-STRIDES ARCOLAB LIMITED-2025OS000714

PATIENT
  Age: 28 Year
  Sex: Male

DRUGS (1)
  1. IBUPROFEN [Suspect]
     Active Substance: IBUPROFEN
     Indication: Arthralgia
     Route: 065

REACTIONS (6)
  - Cardiac aneurysm [None]
  - Acute myocardial infarction [None]
  - Disease progression [None]
  - Drug abuse [Unknown]
  - Symptom masked [None]
  - Abdominal discomfort [Unknown]
